FAERS Safety Report 25047546 (Version 5)
Quarter: 2025Q4

REPORT INFORMATION
  Report Type: Report from Study
  Country: US (occurrence: US)
  Receive Date: 20250306
  Receipt Date: 20251231
  Transmission Date: 20260118
  Serious: No
  Sender: PFIZER
  Company Number: US-PFIZER INC-PV202500026942

PATIENT
  Age: 46 Year
  Sex: Male

DRUGS (1)
  1. XELJANZ XR [Suspect]
     Active Substance: TOFACITINIB CITRATE
     Indication: Rheumatoid arthritis
     Dosage: 11 MG, DAILY
     Route: 048
     Dates: start: 202501

REACTIONS (16)
  - Laryngitis [Recovered/Resolved]
  - Oropharyngeal pain [Unknown]
  - Dysphagia [Unknown]
  - Rhinalgia [Unknown]
  - Speech disorder [Unknown]
  - Dysphonia [Unknown]
  - Discouragement [Unknown]
  - Depressed mood [Unknown]
  - Asthenia [Unknown]
  - Lung disorder [Unknown]
  - Peripheral swelling [Unknown]
  - Joint swelling [Unknown]
  - Peripheral swelling [Unknown]
  - Peripheral swelling [Unknown]
  - Nasopharyngitis [Recovered/Resolved]
  - Product dose omission in error [Unknown]

NARRATIVE: CASE EVENT DATE: 20250101
